FAERS Safety Report 25394770 (Version 1)
Quarter: 2025Q2

REPORT INFORMATION
  Report Type: Other
  Country: GB (occurrence: GB)
  Receive Date: 20250604
  Receipt Date: 20250604
  Transmission Date: 20250717
  Serious: Yes (Other)
  Sender: MACLEODS
  Company Number: GB-MACLEODS PHARMA-MAC2025053324

PATIENT

DRUGS (2)
  1. EMTRICITABINE\TENOFOVIR DISOPROXIL [Suspect]
     Active Substance: EMTRICITABINE\TENOFOVIR DISOPROXIL
     Indication: HIV infection
     Dosage: TAB/CAPS (NUMBER OF COURSE WAS 1, PRIOR TO CONCEPTION DURING FIRST TRIMESTER + ONGOING AT DELIVERY)
     Route: 048
  2. TIVICAY [Suspect]
     Active Substance: DOLUTEGRAVIR SODIUM
     Indication: HIV infection
     Dosage: UNK (NUMBER OF COURSE WAS 1, PRIOR TO CONCEPTION DURING FIRST TRIMESTER AND ONGOING AT DELIVERY)
     Route: 048

REACTIONS (2)
  - Abortion induced [Unknown]
  - Maternal exposure during pregnancy [Unknown]

NARRATIVE: CASE EVENT DATE: 20250401
